FAERS Safety Report 5117473-1 (Version None)
Quarter: 2006Q3

REPORT INFORMATION
  Report Type: 
  Country: None (occurrence: None)
  Receive Date: 20060926
  Receipt Date: 20060906
  Transmission Date: 20061208
  Serious: Yes (Hospitalization)
  Sender: FDA-Public Use
  Company Number: US200609001381

PATIENT
  Age: 45 Year
  Sex: Male

DRUGS (1)
  1. CYMBALTA [Suspect]
     Indication: MAJOR DEPRESSION
     Dosage: 60 + 30 MG, UNK, UNK - SEE IMAGE

REACTIONS (2)
  - DEPRESSION [None]
  - PARAESTHESIA [None]
